FAERS Safety Report 17532145 (Version 1)
Quarter: 2020Q1

REPORT INFORMATION
  Report Type: Spontaneous
  Country: TW (occurrence: TW)
  Receive Date: 20200311
  Receipt Date: 20200311
  Transmission Date: 20200409
  Serious: Yes (Other)
  Sender: FDA-Public Use
  Company Number: TW-BAXTER-2020BAX005189

PATIENT
  Sex: Male

DRUGS (15)
  1. METHOTREXATE. [Suspect]
     Active Substance: METHOTREXATE
     Dosage: MAINTENANCE CHEMOTHERAPY FOR 2 YEARS
     Route: 042
     Dates: end: 20080110
  2. ENDOXAN INJECTION [Suspect]
     Active Substance: CYCLOPHOSPHAMIDE
     Dosage: HIGH DOSE CEP 3 G/M2 X 2 DAYS, INTENSIVE CONSOLIDATION
     Route: 065
     Dates: start: 200507, end: 200509
  3. ARA-C [Concomitant]
     Active Substance: CYTARABINE
     Indication: PRECURSOR T-LYMPHOBLASTIC LEUKAEMIA ACUTE
     Route: 065
     Dates: start: 200412, end: 200503
  4. ETOPOSIDE. [Concomitant]
     Active Substance: ETOPOSIDE
     Indication: PRECURSOR T-LYMPHOBLASTIC LEUKAEMIA ACUTE
     Dosage: HIGH DOSE CEP, 100 MG/M2 X 4 DAYS, INTENSIVE CONSOLIDATION
     Route: 065
     Dates: start: 200507, end: 200509
  5. ENDOXAN INJECTION [Suspect]
     Active Substance: CYCLOPHOSPHAMIDE
     Indication: PRECURSOR T-LYMPHOBLASTIC LEUKAEMIA ACUTE
     Route: 065
     Dates: start: 200412, end: 200503
  6. METHOTREXATE. [Suspect]
     Active Substance: METHOTREXATE
     Dosage: HIGH DOSE
     Route: 065
     Dates: start: 200412, end: 200503
  7. MITOXANTRONE [Concomitant]
     Active Substance: MITOXANTRONE HYDROCHLORIDE
     Indication: PRECURSOR T-LYMPHOBLASTIC LEUKAEMIA ACUTE
     Route: 065
     Dates: start: 200412, end: 200503
  8. CISPLATIN. [Concomitant]
     Active Substance: CISPLATIN
     Indication: PRECURSOR T-LYMPHOBLASTIC LEUKAEMIA ACUTE
     Dosage: 50 MG/M2 X 2 DAYS, INTENSIVE CONSOLIDATION
     Route: 065
     Dates: start: 200507, end: 200509
  9. ENDOXAN INJECTION [Suspect]
     Active Substance: CYCLOPHOSPHAMIDE
     Dosage: HIGH DOSE, INTENSIVE CONSOLIDATION
     Route: 065
     Dates: start: 200507, end: 200509
  10. L-ASPARAGINASE [Concomitant]
     Active Substance: ASPARAGINASE
     Indication: PRECURSOR T-LYMPHOBLASTIC LEUKAEMIA ACUTE
     Route: 065
     Dates: start: 200412, end: 200503
  11. VINCRISTINE [Concomitant]
     Active Substance: VINCRISTINE
     Indication: PRECURSOR T-LYMPHOBLASTIC LEUKAEMIA ACUTE
     Route: 065
     Dates: start: 200412, end: 200503
  12. DAUNORUBICIN [Concomitant]
     Active Substance: DAUNORUBICIN
     Indication: PRECURSOR T-LYMPHOBLASTIC LEUKAEMIA ACUTE
     Route: 065
     Dates: start: 200412, end: 200503
  13. PREDNISOLONE. [Concomitant]
     Active Substance: PREDNISOLONE
     Indication: PRECURSOR T-LYMPHOBLASTIC LEUKAEMIA ACUTE
     Route: 065
     Dates: start: 200412, end: 200503
  14. METHOTREXATE. [Suspect]
     Active Substance: METHOTREXATE
     Indication: PRECURSOR T-LYMPHOBLASTIC LEUKAEMIA ACUTE
     Route: 037
     Dates: start: 200412, end: 200503
  15. MERCAPTOPURINE. [Concomitant]
     Active Substance: MERCAPTOPURINE
     Indication: PRECURSOR T-LYMPHOBLASTIC LEUKAEMIA ACUTE
     Dosage: APPLIED DAILY FOR 2 YEARS
     Route: 065

REACTIONS (2)
  - Pulmonary fibrosis [Not Recovered/Not Resolved]
  - Pneumothorax spontaneous [Not Recovered/Not Resolved]
